FAERS Safety Report 4503315-1 (Version None)
Quarter: 2004Q4

REPORT INFORMATION
  Report Type: 
  Country: None (occurrence: None)
  Receive Date: 20041112
  Receipt Date: 20041028
  Transmission Date: 20050328
  Serious: Yes (Hospitalization)
  Sender: FDA-Public Use
  Company Number: 202115

PATIENT
  Age: 42 Year
  Sex: Female
  Weight: 92.9874 kg

DRUGS (3)
  1. AVONEX [Suspect]
     Indication: MULTIPLE SCLEROSIS
     Dosage: 30 MCG QW IM
     Route: 030
     Dates: start: 20031211
  2. DURAGESIC [Concomitant]
  3. KLONOPIN [Concomitant]

REACTIONS (17)
  - ANOREXIA [None]
  - COMPUTERISED TOMOGRAM THORAX ABNORMAL [None]
  - CONDITION AGGRAVATED [None]
  - DIFFICULTY IN WALKING [None]
  - DYSGEUSIA [None]
  - DYSPHAGIA [None]
  - DYSPNOEA [None]
  - GASTROENTERITIS VIRAL [None]
  - HYPOAESTHESIA [None]
  - INJECTION SITE HAEMORRHAGE [None]
  - INJECTION SITE PAIN [None]
  - OESOPHAGEAL STENOSIS [None]
  - PAIN IN EXTREMITY [None]
  - THROMBOSIS [None]
  - UTERINE POLYP [None]
  - VOMITING [None]
  - WEIGHT DECREASED [None]
